FAERS Safety Report 7476996-0 (Version None)
Quarter: 2011Q2

REPORT INFORMATION
  Report Type: 
  Country: None (occurrence: None)
  Receive Date: 20110512
  Receipt Date: 20110210
  Transmission Date: 20111010
  Serious: No
  Sender: FDA-Public Use
  Company Number: US-BAYER-2011-013603

PATIENT
  Age: 63 Year
  Sex: Female

DRUGS (6)
  1. ATIVAN [Concomitant]
     Dosage: 5 MG, PRN
  2. PHENOBARB [Concomitant]
     Dosage: 90 MG, QD
  3. AVELOX [Suspect]
     Indication: BRONCHITIS
     Dosage: UNK
     Dates: start: 20110207
  4. HERPES VIRUS VACCINE [Suspect]
     Indication: HERPES ZOSTER
     Dosage: 0.65 ML, ONCE
     Route: 058
     Dates: start: 20100801, end: 20100801
  5. FOSAMAX [Concomitant]
  6. DILANTIN [Concomitant]

REACTIONS (1)
  - HERPES ZOSTER [None]
